FAERS Safety Report 9672224 (Version 1)
Quarter: 2013Q4

REPORT INFORMATION
  Report Type: Spontaneous
  Country: IN (occurrence: None)
  Receive Date: 20131105
  Receipt Date: 20131105
  Transmission Date: 20140711
  Serious: Yes (Other)
  Sender: FDA-Public Use
  Company Number: FK201304795

PATIENT
  Age: 12 Year
  Sex: Male

DRUGS (1)
  1. VALPROATE [Suspect]
     Indication: PRODUCT USED FOR UNKNOWN INDICATION
     Dosage: 400MG, 1 IN 1 D,

REACTIONS (10)
  - MELAS syndrome [None]
  - Convulsion [None]
  - Disease recurrence [None]
  - Hepatic function abnormal [None]
  - Condition aggravated [None]
  - Blood lactate dehydrogenase increased [None]
  - Cerebral infarction [None]
  - Hepatotoxicity [None]
  - Mitochondrial encephalomyopathy [None]
  - Lactic acidosis [None]
